FAERS Safety Report 15243131 (Version 3)
Quarter: 2018Q3

REPORT INFORMATION
  Report Type: Report from Study
  Country: US (occurrence: US)
  Receive Date: 20180806
  Receipt Date: 20180910
  Transmission Date: 20181010
  Serious: Yes (Hospitalization)
  Sender: FDA-Public Use
  Company Number: US-CELGENEUS-USA-20180709706

PATIENT
  Age: 54 Year
  Sex: Male
  Weight: 87.62 kg

DRUGS (13)
  1. PEPCID [Concomitant]
     Active Substance: FAMOTIDINE
     Indication: HERNIA
  2. HUMIRA [Concomitant]
     Active Substance: ADALIMUMAB
     Indication: PROSTATIC SPECIFIC ANTIGEN
     Dosage: 40 MILLIGRAM
     Route: 058
     Dates: start: 20180702, end: 20180702
  3. PEPCID [Concomitant]
     Active Substance: FAMOTIDINE
     Indication: GASTROOESOPHAGEAL REFLUX DISEASE
     Dosage: 20 MILLIGRAM
     Route: 048
     Dates: start: 20180430
  4. NICODERM CQ [Concomitant]
     Active Substance: NICOTINE
     Indication: SMOKING CESSATION THERAPY
     Dosage: 63 MILLIGRAM
     Route: 065
     Dates: start: 20180430
  5. MOBIC [Concomitant]
     Active Substance: MELOXICAM
     Indication: PROSTATIC SPECIFIC ANTIGEN
     Dosage: 15 MILLIGRAM
     Route: 048
     Dates: start: 20180530
  6. FLONASE [Concomitant]
     Active Substance: FLUTICASONE PROPIONATE
     Indication: DYSPNOEA
     Dosage: 2 SPRAYS
     Route: 055
     Dates: start: 20180430
  7. CC?10004 [Suspect]
     Active Substance: APREMILAST
     Dosage: 60 MILLIGRAM
     Route: 048
     Dates: start: 20180706
  8. NICORETTE [Concomitant]
     Active Substance: NICOTINE
     Indication: SMOKING CESSATION THERAPY
     Dosage: 2 MILLIGRAM
     Route: 048
     Dates: start: 20180430
  9. CC?10004 [Suspect]
     Active Substance: APREMILAST
     Indication: PSORIASIS
     Dosage: 60 MILLIGRAM
     Route: 048
     Dates: start: 20180629, end: 20180703
  10. ADVIL [Concomitant]
     Active Substance: IBUPROFEN
     Indication: PROSTATIC SPECIFIC ANTIGEN
     Dosage: 600 MILLIGRAM
     Route: 048
     Dates: start: 2016
  11. ALBUTEROL. [Concomitant]
     Active Substance: ALBUTEROL
     Indication: DYSPNOEA
     Dosage: 2 PUFFS
     Route: 055
     Dates: start: 20180430
  12. OXYCODONE [Concomitant]
     Active Substance: OXYCODONE
     Indication: HERNIA HIATUS REPAIR
     Dosage: 5 MILLIGRAM
     Route: 048
     Dates: start: 20180620, end: 20180629
  13. ALEVE [Concomitant]
     Active Substance: NAPROXEN SODIUM
     Indication: PROSTATIC SPECIFIC ANTIGEN
     Dosage: 220 MILLIGRAM
     Route: 048
     Dates: start: 2016

REACTIONS (1)
  - Postoperative wound infection [Recovered/Resolved]

NARRATIVE: CASE EVENT DATE: 20180701
